FAERS Safety Report 14145452 (Version 1)
Quarter: 2017Q4

REPORT INFORMATION
  Report Type: Spontaneous
  Country: US (occurrence: US)
  Receive Date: 20171031
  Receipt Date: 20171031
  Transmission Date: 20180321
  Serious: No
  Sender: FDA-Public Use
  Company Number: US-009507513-1710USA010452

PATIENT
  Age: 60 Year
  Sex: Female

DRUGS (4)
  1. CLARITHROMYCIN. [Concomitant]
     Active Substance: CLARITHROMYCIN
  2. EMEND [Suspect]
     Active Substance: APREPITANT
     Indication: BREAST CANCER
     Dosage: UNKNOWN
     Route: 042
     Dates: start: 20171019, end: 20171019
  3. CANNABIDIOL [Concomitant]
     Active Substance: CANNABIDIOL
  4. PRINIVIL [Concomitant]
     Active Substance: LISINOPRIL
     Dosage: UNKNOWN
     Route: 048

REACTIONS (4)
  - Erythema [Recovered/Resolved]
  - Tachycardia [Recovered/Resolved]
  - Product use in unapproved indication [Unknown]
  - Visual impairment [Recovered/Resolved]

NARRATIVE: CASE EVENT DATE: 20171019
